FAERS Safety Report 7227344-2 (Version None)
Quarter: 2010Q4

REPORT INFORMATION
  Report Type: 
  Country: None (occurrence: None)
  Receive Date: 20101126
  Receipt Date: 20100913
  Transmission Date: 20110411
  Serious: No
  Sender: FDA-Public Use
  Company Number: 314653

PATIENT
  Age: 64 Year
  Sex: Male
  Weight: 108.8 kg

DRUGS (4)
  1. VICTOZA [Suspect]
     Indication: TYPE 2 DIABETES MELLITUS
     Dosage: 0.6 MG, QD, SUBCUTANEOUS; 1.2 MG, QD, SUBCUTANEOUS
     Route: 058
  2. ZESTRIL [Concomitant]
  3. CARDIZEM [Concomitant]
  4. ULORIC [Concomitant]

REACTIONS (2)
  - BACK PAIN [None]
  - MUSCULOSKELETAL CHEST PAIN [None]
